FAERS Safety Report 8483057-0 (Version None)
Quarter: 2012Q3

REPORT INFORMATION
  Report Type: 
  Country: None (occurrence: None)
  Receive Date: 20120702
  Receipt Date: 20120619
  Transmission Date: 20120928
  Serious: No
  Sender: FDA-Public Use
  Company Number: US-ASTRAZENECA-2012SE41135

PATIENT
  Age: 71 Year
  Sex: Female
  Weight: 58.1 kg

DRUGS (3)
  1. CRESTOR [Suspect]
     Indication: BLOOD CHOLESTEROL
     Route: 048
  2. GABAPENTIN [Concomitant]
     Indication: FIBROMYALGIA
  3. LEVOTHYROXINE SODIUM [Concomitant]

REACTIONS (2)
  - HEARING IMPAIRED [None]
  - COELIAC DISEASE [None]
